FAERS Safety Report 9350701 (Version 2)
Quarter: 2014Q2

REPORT INFORMATION
  Report Type: Spontaneous
  Country: JP (occurrence: JP)
  Receive Date: 20130617
  Receipt Date: 20140602
  Transmission Date: 20141212
  Serious: Yes (Hospitalization, Other)
  Sender: FDA-Public Use
  Company Number: PHHY2013JP060736

PATIENT
  Sex: Female

DRUGS (2)
  1. TASIGNA [Suspect]
     Indication: CHRONIC MYELOID LEUKAEMIA
     Route: 048
  2. GLIVEC [Concomitant]
     Indication: CHRONIC MYELOID LEUKAEMIA

REACTIONS (9)
  - Chronic myeloid leukaemia transformation [Recovered/Resolved]
  - Intracranial pressure increased [Unknown]
  - Malignant neoplasm progression [Unknown]
  - Chronic myeloid leukaemia [Unknown]
  - Photopsia [Recovered/Resolved]
  - Anorectal disorder [Not Recovered/Not Resolved]
  - Headache [Recovered/Resolved]
  - Photophobia [Unknown]
  - Dysuria [Not Recovered/Not Resolved]
